FAERS Safety Report 6168282-6 (Version None)
Quarter: 2009Q2

REPORT INFORMATION
  Report Type: 
  Country: None (occurrence: None)
  Receive Date: 20090427
  Receipt Date: 20090415
  Transmission Date: 20091009
  Serious: Yes (Other)
  Sender: FDA-Public Use
  Company Number: US-PFIZER INC-2009200431

PATIENT
  Sex: Female

DRUGS (2)
  1. LYRICA [Suspect]
  2. METHADONE [Suspect]

REACTIONS (2)
  - DRUG ABUSER [None]
  - LOSS OF CONSCIOUSNESS [None]
